FAERS Safety Report 6545979-7 (Version None)
Quarter: 2010Q1

REPORT INFORMATION
  Report Type: 
  Country: None (occurrence: None)
  Receive Date: 20100121
  Receipt Date: 20100121
  Transmission Date: 20100710
  Serious: Yes (Other)
  Sender: FDA-Public Use
  Company Number: None

PATIENT
  Sex: Male
  Weight: 99.7913 kg

DRUGS (2)
  1. TYLENOL (CAPLET) [Suspect]
     Dosage: 2 GELCAPS
     Dates: start: 20100115, end: 20100115
  2. TYLENOL (CAPLET) [Suspect]
     Dosage: 2 GELCAPS
     Dates: start: 20100117, end: 20100117

REACTIONS (3)
  - DIARRHOEA [None]
  - PRODUCT QUALITY ISSUE [None]
  - VOMITING [None]
